FAERS Safety Report 7742464 (Version 3)
Quarter: 2013Q4

REPORT INFORMATION
  Report Type: Spontaneous
  Country: NL (occurrence: NL)
  Receive Date: 20101229
  Receipt Date: 20131016
  Transmission Date: 20140711
  Serious: Yes (Other)
  Sender: FDA-Public Use
  Company Number: NL-TEVA-261013ISR

PATIENT
  Age: 77 Year
  Sex: Female

DRUGS (8)
  1. PHENPROCOUMON [Suspect]
  2. MICONAZOLE [Interacting]
     Indication: INTERTRIGO
     Dosage: 20MG/G
     Route: 061
  3. GLIMEPIRIDE [Concomitant]
  4. SIMVASTATIN [Concomitant]
  5. METFORMIN [Concomitant]
  6. LOSARTAN [Concomitant]
  7. CARVEDILOL [Concomitant]
  8. FUROSEMIDE [Concomitant]

REACTIONS (3)
  - Coagulation test abnormal [Recovered/Resolved]
  - Drug interaction [Recovered/Resolved]
  - International normalised ratio increased [Recovered/Resolved]
